FAERS Safety Report 7814868-X (Version None)
Quarter: 2011Q4

REPORT INFORMATION
  Report Type: 
  Country: None (occurrence: None)
  Receive Date: 20111013
  Receipt Date: 20111013
  Transmission Date: 20120403
  Serious: Yes (Other)
  Sender: FDA-Public Use
  Company Number: None

PATIENT
  Sex: Female
  Weight: 67.586 kg

DRUGS (1)
  1. PROZAC [Suspect]
     Indication: DEPRESSION
     Dosage: 1 DAILY

REACTIONS (9)
  - FATIGUE [None]
  - BALANCE DISORDER [None]
  - TREMOR [None]
  - HYPERTENSION [None]
  - NERVOUSNESS [None]
  - LACRIMATION INCREASED [None]
  - IMPLANT SITE PAIN [None]
  - DIZZINESS [None]
  - EYE DISORDER [None]
